FAERS Safety Report 21923441 (Version 6)
Quarter: 2023Q4

REPORT INFORMATION
  Report Type: Report from Study
  Country: US (occurrence: US)
  Receive Date: 20230130
  Receipt Date: 20231009
  Transmission Date: 20240110
  Serious: Yes (Hospitalization, Other)
  Sender: FDA-Public Use
  Company Number: US-ABBVIE-4285616

PATIENT
  Age: 79 Year
  Sex: Male
  Weight: 90.265 kg

DRUGS (5)
  1. IMBRUVICA [Suspect]
     Active Substance: IBRUTINIB
     Indication: Product used for unknown indication
     Dosage: FORM STRENGTH: 420 MG; LAST ADMIN-2023
     Route: 048
     Dates: start: 20230121
  2. IMBRUVICA [Suspect]
     Active Substance: IBRUTINIB
     Indication: Product used for unknown indication
     Dosage: FORM STRENGTH: 420 MG; LAST ADMIN DATE-2016
     Route: 048
     Dates: start: 20160610
  3. IMBRUVICA [Suspect]
     Active Substance: IBRUTINIB
     Indication: Product used for unknown indication
     Dosage: FORM STRENGTH: 420 MG
     Route: 048
  4. IMBRUVICA [Suspect]
     Active Substance: IBRUTINIB
     Indication: Product used for unknown indication
     Dosage: FORM STRENGTH: 420 MG
     Route: 048
     Dates: start: 201608, end: 20220208
  5. IMBRUVICA [Suspect]
     Active Substance: IBRUTINIB
     Indication: Product used for unknown indication
     Dosage: FORM STRENGTH: 420 MG
     Route: 048
     Dates: start: 2022, end: 20221220

REACTIONS (13)
  - Concussion [Recovered/Resolved]
  - Asthenia [Recovered/Resolved]
  - Cerebral haemorrhage [Recovered/Resolved]
  - Headache [Recovered/Resolved]
  - Head injury [Recovered/Resolved]
  - Balance disorder [Recovered/Resolved]
  - Haemorrhage [Recovered/Resolved]
  - Blood viscosity decreased [Recovered/Resolved]
  - Dizziness [Recovered/Resolved]
  - Subdural haematoma [Recovered/Resolved]
  - Cerebral artery embolism [Unknown]
  - Injury [Unknown]
  - Haemorrhage intracranial [Unknown]

NARRATIVE: CASE EVENT DATE: 20221204
